FAERS Safety Report 20455791 (Version 2)
Quarter: 2022Q1

REPORT INFORMATION
  Report Type: Report from Study
  Country: FR (occurrence: None)
  Receive Date: 20220210
  Receipt Date: 20220218
  Transmission Date: 20220423
  Serious: Yes (Life-Threatening, Hospitalization, Other)
  Sender: FDA-Public Use
  Company Number: 2022A062126

PATIENT
  Age: 82 Year
  Sex: Female

DRUGS (8)
  1. QUETIAPINE [Interacting]
     Active Substance: QUETIAPINE
     Route: 048
  2. DABIGATRAN [Interacting]
     Active Substance: DABIGATRAN
     Indication: Atrial fibrillation
     Route: 048
  3. VENLAFAXINE HYDROCHLORIDE [Interacting]
     Active Substance: VENLAFAXINE HYDROCHLORIDE
     Route: 048
  4. ACETAMINOPHEN [Interacting]
     Active Substance: ACETAMINOPHEN
     Route: 048
  5. ZOPICLONE [Interacting]
     Active Substance: ZOPICLONE
     Route: 048
  6. CETIRIZINE [Interacting]
     Active Substance: CETIRIZINE HYDROCHLORIDE
     Route: 048
  7. LORAZEPAM [Interacting]
     Active Substance: LORAZEPAM
     Route: 048
  8. MONTELUKAST [Interacting]
     Active Substance: MONTELUKAST SODIUM
     Route: 048

REACTIONS (6)
  - Intentional overdose [Unknown]
  - Drug interaction [Unknown]
  - Suicide attempt [Unknown]
  - Toxicity to various agents [Unknown]
  - Renal failure [Unknown]
  - Somnolence [Unknown]
